FAERS Safety Report 10353193 (Version 2)
Quarter: 2014Q3

REPORT INFORMATION
  Report Type: Spontaneous
  Country: JP (occurrence: JP)
  Receive Date: 20140730
  Receipt Date: 20140730
  Transmission Date: 20150326
  Serious: Yes (Other)
  Sender: FDA-Public Use
  Company Number: PHJP2014JP000846

PATIENT
  Age: 82 Year
  Sex: Female
  Weight: 45 kg

DRUGS (4)
  1. TEGRETOL [Suspect]
     Active Substance: CARBAMAZEPINE
     Indication: EPILEPSY
     Dosage: 50 MG, BID
     Route: 048
     Dates: start: 20140517, end: 20140519
  2. NOBELBAR [Concomitant]
     Indication: EPILEPSY
     Dosage: 500 MG, QD
     Route: 042
     Dates: start: 20140517, end: 20140517
  3. TEGRETOL [Suspect]
     Active Substance: CARBAMAZEPINE
     Dosage: 100 MG, BID
     Route: 048
     Dates: start: 20140520, end: 20140602
  4. XARELTO [Concomitant]
     Active Substance: RIVAROXABAN
     Dosage: 10 MG, QD
     Route: 048
     Dates: start: 20140529, end: 20140602

REACTIONS (9)
  - White blood cell count decreased [Unknown]
  - Lymphocyte count increased [Not Recovered/Not Resolved]
  - Basophil count increased [Not Recovered/Not Resolved]
  - Monocyte count decreased [Recovered/Resolved]
  - Immune thrombocytopenic purpura [Recovered/Resolved]
  - Eosinophil count increased [Not Recovered/Not Resolved]
  - Platelet count decreased [Recovered/Resolved]
  - Petechiae [Recovered/Resolved]
  - Neutrophil count decreased [Not Recovered/Not Resolved]

NARRATIVE: CASE EVENT DATE: 20140602
